FAERS Safety Report 8141315-3 (Version None)
Quarter: 2012Q1

REPORT INFORMATION
  Report Type: 
  Country: None (occurrence: None)
  Receive Date: 20120216
  Receipt Date: 20120206
  Transmission Date: 20120608
  Serious: Yes (Death, Other)
  Sender: FDA-Public Use
  Company Number: US-ELI_LILLY_AND_COMPANY-US201112003609

PATIENT
  Sex: Male
  Weight: 57.596 kg

DRUGS (3)
  1. TRAMADOL HCL [Concomitant]
     Dosage: UNK, PRN
  2. PROZAC [Suspect]
     Indication: DEPRESSION
     Dosage: 20 MG, QD
     Dates: start: 20111101
  3. PROZAC [Suspect]
     Dosage: 10 MG, QD

REACTIONS (18)
  - ABDOMINAL PAIN UPPER [None]
  - CONFUSIONAL STATE [None]
  - ANAEMIA [None]
  - DECREASED APPETITE [None]
  - ASTHENIA [None]
  - UNRESPONSIVE TO STIMULI [None]
  - GENERAL PHYSICAL HEALTH DETERIORATION [None]
  - SOMNOLENCE [None]
  - CHOKING [None]
  - GAIT DISTURBANCE [None]
  - ANXIETY [None]
  - GASTROINTESTINAL MOTILITY DISORDER [None]
  - DYSPNOEA [None]
  - WEIGHT DECREASED [None]
  - DRY MOUTH [None]
  - DEATH [None]
  - DYSPHAGIA [None]
  - CONSTIPATION [None]
